FAERS Safety Report 8863245 (Version 1)
Quarter: 2012Q4

REPORT INFORMATION
  Report Type: Report from Study
  Country: US (occurrence: US)
  Receive Date: 20121025
  Receipt Date: 20121025
  Transmission Date: 20130627
  Serious: No
  Sender: FDA-Public Use
  Company Number: US-ABBOTT-12P-163-0963313-00

PATIENT
  Sex: Female
  Weight: 70.82 kg

DRUGS (4)
  1. LUPRON DEPOT 3.75 MG [Suspect]
     Indication: ENDOMETRIOSIS
     Dates: start: 201207
  2. CYMBALTA [Concomitant]
     Indication: DEPRESSION
  3. TYLENOL [Concomitant]
     Indication: BACK PAIN
  4. TRAZODONE [Concomitant]
     Indication: INSOMNIA

REACTIONS (1)
  - Pain [Not Recovered/Not Resolved]
